FAERS Safety Report 7190486-4 (Version None)
Quarter: 2010Q4

REPORT INFORMATION
  Report Type: 
  Country: None (occurrence: None)
  Receive Date: 20101223
  Receipt Date: 20101214
  Transmission Date: 20110411
  Serious: Yes (Hospitalization)
  Sender: FDA-Public Use
  Company Number: NZ-JNJFOC-20101205681

PATIENT
  Sex: Female
  Weight: 83 kg

DRUGS (18)
  1. GOLIMUMAB [Suspect]
     Indication: RHEUMATOID ARTHRITIS
     Route: 058
  2. GOLIMUMAB [Suspect]
     Route: 058
  3. PLACEBO [Suspect]
     Indication: RHEUMATOID ARTHRITIS
     Route: 058
  4. METHOTREXATE [Suspect]
     Indication: RHEUMATOID ARTHRITIS
     Route: 048
  5. METHOTREXATE [Suspect]
     Route: 048
  6. FOLIC ACID [Concomitant]
     Route: 048
  7. CODEINE PHOSPHATE [Concomitant]
     Route: 048
  8. INHIBACE [Concomitant]
     Route: 048
  9. FRAGADOR [Concomitant]
     Route: 048
  10. RENOXYL [Concomitant]
     Route: 048
  11. PRILOSEC [Concomitant]
     Route: 048
  12. ALENDRONATE SODIUM [Concomitant]
     Route: 048
  13. CALCIUM [Concomitant]
     Route: 048
  14. ASPIRIN [Concomitant]
     Route: 048
  15. DERMALAN [Concomitant]
     Route: 061
  16. METOPROLOL TARTRATE [Concomitant]
     Route: 048
  17. PARACETAMOL [Concomitant]
     Route: 048
  18. VITAMIN A [Concomitant]
     Route: 061

REACTIONS (4)
  - BILIARY COLIC [None]
  - INCISION SITE CELLULITIS [None]
  - LOBAR PNEUMONIA [None]
  - RHEUMATOID ARTHRITIS [None]
